FAERS Safety Report 8888515 (Version 1)
Quarter: 2012Q4

REPORT INFORMATION
  Report Type: Report from Study
  Country: US (occurrence: US)
  Receive Date: 20121106
  Receipt Date: 20121106
  Transmission Date: 20130627
  Serious: Yes (Death)
  Sender: FDA-Public Use
  Company Number: US-ROCHE-1152691

PATIENT
  Age: 63 Year
  Sex: Male
  Weight: 31.78 kg

DRUGS (1)
  1. CAPECITABINE [Suspect]
     Indication: COLON CANCER
     Route: 065

REACTIONS (2)
  - Malnutrition [Fatal]
  - Dehydration [Fatal]
